FAERS Safety Report 7027100-4 (Version None)
Quarter: 2010Q4

REPORT INFORMATION
  Report Type: 
  Country: None (occurrence: None)
  Receive Date: 20101004
  Receipt Date: 20100925
  Transmission Date: 20110411
  Serious: Yes (Other)
  Sender: FDA-Public Use
  Company Number: US-BAYER-201020793BCC

PATIENT
  Age: 50 Year
  Sex: Female
  Weight: 91 kg

DRUGS (6)
  1. ALEVE (CAPLET) [Suspect]
     Indication: PRODUCT USED FOR UNKNOWN INDICATION
     Dosage: TOTAL DAILY DOSE: 440 MG  UNIT DOSE: 220 MG
     Route: 048
     Dates: start: 20100925
  2. CYMBALTA [Concomitant]
  3. CLARITIN [Concomitant]
  4. FOLIC ACID [Concomitant]
  5. GLUCOSAMINE [Concomitant]
  6. PREDNISONE [Concomitant]
     Dates: end: 20100925

REACTIONS (2)
  - PHOTOPSIA [None]
  - VISION BLURRED [None]
